FAERS Safety Report 20123345 (Version 3)
Quarter: 2021Q4

REPORT INFORMATION
  Report Type: Spontaneous
  Country: US (occurrence: US)
  Receive Date: 20211129
  Receipt Date: 20211207
  Transmission Date: 20220304
  Serious: Yes (Other)
  Sender: FDA-Public Use
  Company Number: US-AMGEN-USASP2021187949

PATIENT
  Sex: Male
  Weight: 90 kg

DRUGS (1)
  1. PROCRIT [Suspect]
     Active Substance: ERYTHROPOIETIN
     Indication: End stage renal disease
     Dosage: 10000 IU, Q3WK
     Route: 065

REACTIONS (1)
  - Therapeutic response decreased [Unknown]
